FAERS Safety Report 10601711 (Version 5)
Quarter: 2015Q3

REPORT INFORMATION
  Report Type: Spontaneous
  Country: US (occurrence: US)
  Receive Date: 20141124
  Receipt Date: 20150821
  Transmission Date: 20151125
  Serious: Yes (Hospitalization)
  Sender: FDA-Public Use
  Company Number: US-PFIZER INC-2014318978

PATIENT
  Age: 59 Year
  Sex: Female
  Weight: 49 kg

DRUGS (17)
  1. CHILDREN^S ASPIRIN [Concomitant]
     Active Substance: ASPIRIN
     Dosage: 81 MG, UNK
  2. DILTIAZEM [Concomitant]
     Active Substance: DILTIAZEM
     Dosage: UNK
     Dates: start: 201501
  3. RALOXIFENE HCL [Concomitant]
     Active Substance: RALOXIFENE
     Dosage: UNK
  4. FLUCONAZOLE. [Concomitant]
     Active Substance: FLUCONAZOLE
     Dosage: 100 MG, SINGLE
     Dates: start: 20141112, end: 20141112
  5. XALKORI [Suspect]
     Active Substance: CRIZOTINIB
     Indication: LUNG NEOPLASM MALIGNANT
     Dosage: 250 MG, 2X/DAY
     Dates: start: 201402
  6. XALKORI [Suspect]
     Active Substance: CRIZOTINIB
     Dosage: 250 MG, UNK
     Dates: start: 201402
  7. BONIVA [Concomitant]
     Active Substance: IBANDRONATE SODIUM
     Dosage: 150 MG, UNK
  8. FISH OIL [Concomitant]
     Active Substance: FISH OIL
     Dosage: 1000 MG, UNK
  9. ONE A DAY WOMEN [Concomitant]
     Dosage: UNK
  10. BAYER LOW DOSE ASPIRIN [Concomitant]
     Dosage: UNK
  11. VITAMIN E [Concomitant]
     Active Substance: .ALPHA.-TOCOPHEROL
     Dosage: UNK
  12. LEVOTHYROXINE. [Concomitant]
     Active Substance: LEVOTHYROXINE
     Dosage: UNK,
  13. DILTIAZEM [Concomitant]
     Active Substance: DILTIAZEM
     Dosage: 30 MG, UNK
     Route: 048
     Dates: start: 201412
  14. HALOPERIDOL. [Concomitant]
     Active Substance: HALOPERIDOL
     Dosage: 37.5 MG, MONTHLY
  15. FERROUS SULFATE ER [Concomitant]
     Dosage: 140 MG, 1X/DAY
     Route: 048
     Dates: start: 201410, end: 201411
  16. KLOR CON M20 [Concomitant]
     Dosage: UNK
     Dates: start: 201410, end: 201411
  17. LIPITOR [Concomitant]
     Active Substance: ATORVASTATIN CALCIUM
     Dosage: 40 MG, UNK

REACTIONS (4)
  - Dyspnoea [Recovered/Resolved]
  - Asthenia [Unknown]
  - Pulmonary oedema [Unknown]
  - Weight fluctuation [Unknown]

NARRATIVE: CASE EVENT DATE: 201411
